FAERS Safety Report 20990011 (Version 1)
Quarter: 2022Q2

REPORT INFORMATION
  Report Type: Spontaneous
  Country: ES (occurrence: ES)
  Receive Date: 20220621
  Receipt Date: 20220621
  Transmission Date: 20220720
  Serious: Yes (Other)
  Sender: FDA-Public Use
  Company Number: ES-STRIDES ARCOLAB LIMITED-2022SP007414

PATIENT

DRUGS (14)
  1. PREDNISOLONE [Suspect]
     Active Substance: PREDNISOLONE
     Indication: Acute lymphocytic leukaemia
     Dosage: UNK (INDUCTION IA PHASE; PREDNISONE)
     Route: 048
  2. PREDNISOLONE [Suspect]
     Active Substance: PREDNISOLONE
     Dosage: UNK (INDUCTION IA PHASE; PREDNISOLONE)
     Route: 042
  3. PREDNISOLONE [Suspect]
     Active Substance: PREDNISOLONE
     Dosage: UNK (INDUCTION IA PHASE; PREDNISONE)
     Route: 037
  4. PREDNISOLONE [Suspect]
     Active Substance: PREDNISOLONE
     Dosage: UNK (INDUCTION IB PHASE)
     Route: 037
  5. METHOTREXATE [Suspect]
     Active Substance: METHOTREXATE
     Indication: Acute lymphocytic leukaemia
     Dosage: UNK (INDUCTION IA PHASE)
     Route: 037
  6. METHOTREXATE [Suspect]
     Active Substance: METHOTREXATE
     Dosage: UNK (INDUCTION IB PHASE)
     Route: 037
  7. VINCRISTINE [Suspect]
     Active Substance: VINCRISTINE
     Indication: Acute lymphocytic leukaemia
     Dosage: UNK (INDUCTION IA PHASE)
     Route: 042
  8. DAUNORUBICIN [Suspect]
     Active Substance: DAUNORUBICIN
     Indication: Acute lymphocytic leukaemia
     Dosage: UNK (INDUCTION IA PHASE)
     Route: 042
  9. ASPARAGINASE [Suspect]
     Active Substance: ASPARAGINASE
     Indication: Acute lymphocytic leukaemia
     Dosage: UNK (INDUCTION IA PHASE)
     Route: 030
  10. CYTARABINE [Suspect]
     Active Substance: CYTARABINE
     Indication: Acute lymphocytic leukaemia
     Dosage: UNK (INDUCTION IA PHASE; ARA-C (CYTARABINE))
     Route: 037
  11. CYTARABINE [Suspect]
     Active Substance: CYTARABINE
     Dosage: UNK (INDUCTION IB PHASE; ARA-C (CYTARABINE))
     Route: 037
  12. CYTARABINE [Suspect]
     Active Substance: CYTARABINE
     Dosage: UNK (INDUCTION IB PHASE;IV INFUSION OF CYTARABINE OVER 1 HOUR)
     Route: 042
  13. CYCLOPHOSPHAMIDE [Suspect]
     Active Substance: CYCLOPHOSPHAMIDE
     Indication: Acute lymphocytic leukaemia
     Dosage: UNK (INDUCTION IB PHASE; OVER 1HOUR)
     Route: 042
  14. MERCAPTOPURINE [Suspect]
     Active Substance: MERCAPTOPURINE
     Indication: Acute lymphocytic leukaemia
     Dosage: UNK (INDUCTION IB PHASE)
     Route: 048

REACTIONS (1)
  - Embolism venous [Unknown]
